FAERS Safety Report 18526517 (Version 3)
Quarter: 2020Q4

REPORT INFORMATION
  Report Type: Spontaneous
  Country: FI (occurrence: FI)
  Receive Date: 20201120
  Receipt Date: 20201230
  Transmission Date: 20210114
  Serious: Yes (Other)
  Sender: FDA-Public Use
  Company Number: FI-SUN PHARMACEUTICAL INDUSTRIES LTD-2020RR-268494

PATIENT
  Age: 74 Year
  Sex: Male

DRUGS (7)
  1. ATORVASTATIN ORION [Suspect]
     Active Substance: ATORVASTATIN CALCIUM
     Indication: HYPERLIPIDAEMIA
     Dosage: STRENGTH: 10 MG
     Route: 065
     Dates: start: 2019
  2. CANDESARTAN ORION [Suspect]
     Active Substance: CANDESARTAN
     Indication: HYPERTENSION
     Dosage: STRENGTH: 4 MG
     Route: 065
     Dates: start: 2019, end: 202010
  3. AMLODIPIN ORION [AMLODIPINE MALEATE] [Suspect]
     Active Substance: AMLODIPINE MALEATE
     Indication: HYPERTENSION
     Dosage: UNK
     Route: 065
     Dates: start: 2019
  4. OXIKLORIN [Suspect]
     Active Substance: HYDROXYCHLOROQUINE SULFATE
     Indication: CONNECTIVE TISSUE DISORDER
     Dosage: UNK
     Route: 065
  5. THYROXIN [Suspect]
     Active Substance: LEVOTHYROXINE
     Indication: HYPOTHYROIDISM
     Dosage: UNK
     Route: 065
  6. BISOPROLOL ORION 2.5 MG [Suspect]
     Active Substance: BISOPROLOL FUMARATE
     Indication: HYPERTENSION
     Dosage: STRENGHT: 2.5 MG
     Route: 065
     Dates: start: 2019
  7. PREDNISOLON [Suspect]
     Active Substance: PREDNISOLONE
     Indication: CONNECTIVE TISSUE DISORDER
     Dosage: UNK
     Route: 065

REACTIONS (6)
  - Blood creatinine increased [Unknown]
  - Glomerular filtration rate decreased [Unknown]
  - Lung disorder [Unknown]
  - Prothrombin time prolonged [Unknown]
  - Hypothyroidism [Unknown]
  - Asthma [Unknown]

NARRATIVE: CASE EVENT DATE: 2020
